FAERS Safety Report 7466880-0 (Version None)
Quarter: 2011Q1

REPORT INFORMATION
  Report Type: 
  Country: None (occurrence: None)
  Receive Date: 20110302
  Receipt Date: 20101221
  Transmission Date: 20110831
  Serious: Yes (Hospitalization)
  Sender: FDA-Public Use
  Company Number: 163-21880-10122602

PATIENT
  Age: 83 Year
  Sex: Male

DRUGS (1)
  1. REVLIMID [Suspect]
     Indication: MULTIPLE MYELOMA
     Dosage: 10 MG, QD X14D, PO
     Route: 048
     Dates: start: 20100514

REACTIONS (4)
  - DRY SKIN [None]
  - SKIN ATROPHY [None]
  - CONTUSION [None]
  - PALPITATIONS [None]
